FAERS Safety Report 10023860 (Version 1)
Quarter: 2014Q1

REPORT INFORMATION
  Report Type: Spontaneous
  Country: US (occurrence: None)
  Receive Date: 20140319
  Receipt Date: 20140319
  Transmission Date: 20141002
  Serious: Yes (Other)
  Sender: FDA-Public Use
  Company Number: None

PATIENT
  Age: 86 Year
  Sex: Female
  Weight: 57.61 kg

DRUGS (15)
  1. HYDROCODONE/ACETAMINOPHEN [Suspect]
     Indication: PROCEDURAL PAIN
     Dosage: AS NEEDED FOR PAIN
     Route: 048
     Dates: start: 20140224, end: 20140225
  2. SYNTHROID [Concomitant]
  3. LISINOPRIL/HCTZ [Concomitant]
  4. FAMOTIDINE [Concomitant]
  5. DILTIAZEM [Concomitant]
  6. SPIRIVA [Concomitant]
  7. COMBIVENT [Concomitant]
  8. VIT B/D [Concomitant]
  9. REFRESH TEARS [Concomitant]
  10. BIOTIN [Concomitant]
  11. CHLOR-TABS [Concomitant]
  12. PRILOSEC [Concomitant]
  13. COLACE [Concomitant]
  14. HORSE CHESTNUT [Concomitant]
  15. ADVAIR [Concomitant]

REACTIONS (3)
  - Pruritus [None]
  - Rash [None]
  - Nausea [None]
